FAERS Safety Report 6613163-4 (Version None)
Quarter: 2010Q1

REPORT INFORMATION
  Report Type: 
  Country: None (occurrence: None)
  Receive Date: 20100225
  Receipt Date: 20100217
  Transmission Date: 20100710
  Serious: Yes (Other)
  Sender: FDA-Public Use
  Company Number: 2009SP026518

PATIENT
  Age: 65 Year
  Sex: Male

DRUGS (1)
  1. ZISPIN (MIRTAZAPINE / 01293201 / ) [Suspect]
     Indication: DEPRESSION
     Dosage: 15 MG; QD; PO, 30 MG
     Route: 048
     Dates: start: 20090901

REACTIONS (5)
  - FATIGUE [None]
  - HALLUCINATION [None]
  - NIGHTMARE [None]
  - SEDATION [None]
  - SOMNOLENCE [None]
